FAERS Safety Report 5920157-0 (Version None)
Quarter: 2008Q4

REPORT INFORMATION
  Report Type: 
  Country: None (occurrence: None)
  Receive Date: 20081016
  Receipt Date: 20081006
  Transmission Date: 20090506
  Serious: Yes (Hospitalization)
  Sender: FDA-Public Use
  Company Number: NL-JNJFOC-20081001390

PATIENT
  Age: 57 Year
  Sex: Female
  Weight: 57.7 kg

DRUGS (7)
  1. DOXORUBICIN HCL [Suspect]
     Indication: BREAST CANCER
     Dosage: 2ND CYCLE
     Route: 042
  2. CYCLOFOSFAMIDE [Suspect]
     Indication: BREAST CANCER
     Dosage: 2ND CYCLE
     Route: 042
  3. METFORMIN HCL [Concomitant]
     Indication: DIABETES MELLITUS
     Route: 048
  4. GLIMEPIRIDE [Concomitant]
     Route: 048
  5. SIMVASTATIN [Concomitant]
     Route: 048
  6. ENALOPRIL [Concomitant]
     Route: 048
  7. HYDROCHLORODIAZIDE [Concomitant]
     Route: 048

REACTIONS (1)
  - MALAISE [None]
